FAERS Safety Report 6580993-7 (Version None)
Quarter: 2010Q1

REPORT INFORMATION
  Report Type: 
  Country: None (occurrence: None)
  Receive Date: 20100215
  Receipt Date: 20100205
  Transmission Date: 20100710
  Serious: Yes (Other)
  Sender: FDA-Public Use
  Company Number: US-AMGEN-QUU390992

PATIENT
  Sex: Female

DRUGS (2)
  1. ENBREL [Suspect]
     Indication: RHEUMATOID ARTHRITIS
     Route: 058
     Dates: start: 20080124, end: 20100101
  2. METHOTREXATE [Concomitant]
     Route: 048
     Dates: start: 20100101

REACTIONS (1)
  - LYMPHOMATOID PAPULOSIS [None]
